FAERS Safety Report 16793281 (Version 1)
Quarter: 2019Q3

REPORT INFORMATION
  Report Type: Spontaneous
  Country: FR (occurrence: FR)
  Receive Date: 20190911
  Receipt Date: 20190911
  Transmission Date: 20191005
  Serious: Yes (Hospitalization)
  Sender: FDA-Public Use
  Company Number: FR-ROCHE-2400869

PATIENT
  Sex: Female
  Weight: 120 kg

DRUGS (2)
  1. FORTUM [CEFTAZIDIME] [Concomitant]
     Active Substance: CEFTAZIDIME
  2. KADCYLA [Suspect]
     Active Substance: ADO-TRASTUZUMAB EMTANSINE
     Indication: PRODUCT USED FOR UNKNOWN INDICATION
     Route: 065

REACTIONS (6)
  - Infusion site haemorrhage [Recovered/Resolved]
  - Gingival bleeding [Recovered/Resolved]
  - Hepatocellular injury [Recovered/Resolved]
  - Epistaxis [Recovered/Resolved]
  - Thrombocytopenia [Recovered/Resolved]
  - Cholestasis [Recovered/Resolved]

NARRATIVE: CASE EVENT DATE: 20190822
